FAERS Safety Report 4462214-4 (Version None)
Quarter: 2004Q3

REPORT INFORMATION
  Report Type: 
  Country: None (occurrence: None)
  Receive Date: 20040929
  Receipt Date: 20040922
  Transmission Date: 20050211
  Serious: Yes (Hospitalization)
  Sender: FDA-Public Use
  Company Number: FR-ROCHE-381208

PATIENT
  Age: 41 Year
  Sex: Male

DRUGS (6)
  1. FUZEON [Suspect]
     Indication: HIV INFECTION
     Route: 058
  2. BACTRIM [Concomitant]
     Indication: PROPHYLAXIS
  3. AZADOSE [Concomitant]
     Indication: PROPHYLAXIS
  4. VIRAMUNE [Concomitant]
     Indication: HIV INFECTION
  5. VIREAD [Concomitant]
     Indication: HIV INFECTION
  6. KALETRA [Concomitant]
     Indication: HIV INFECTION

REACTIONS (2)
  - EXTRAPYRAMIDAL DISORDER [None]
  - PARAPLEGIA [None]
